FAERS Safety Report 16013766 (Version 1)
Quarter: 2019Q1

REPORT INFORMATION
  Report Type: Spontaneous
  Country: ES (occurrence: ES)
  Receive Date: 20190227
  Receipt Date: 20190227
  Transmission Date: 20190418
  Serious: Yes (Hospitalization)
  Sender: FDA-Public Use
  Company Number: PHHY2019ES043709

PATIENT
  Age: 29 Year
  Sex: Female

DRUGS (2)
  1. IBUPROFENO [Suspect]
     Active Substance: IBUPROFEN
     Indication: MIGRAINE
     Dosage: 600 MG, Q12H
     Route: 048
     Dates: start: 20131217
  2. IMIGRANE [Concomitant]
     Active Substance: SUMATRIPTAN SUCCINATE
     Indication: TORTICOLLIS
     Dosage: 1 DF, 15 DAYS
     Route: 048
     Dates: start: 20180424

REACTIONS (2)
  - Abdominal distension [Recovered/Resolved]
  - Gastritis erosive [Recovered/Resolved]

NARRATIVE: CASE EVENT DATE: 20180717
